FAERS Safety Report 6945631 (Version 2)
Quarter: 2013Q1

REPORT INFORMATION
  Report Type: Spontaneous
  Country: ES (occurrence: ES)
  Receive Date: 20090319
  Receipt Date: 20130317
  Transmission Date: 20140127
  Serious: Yes (Death, Hospitalization)
  Sender: FDA-Public Use
  Company Number: ES-ELI_LILLY_AND_COMPANY-ES200903002321

PATIENT
  Sex: Male

DRUGS (1)
  1. FORSTEO [Suspect]
     Indication: OSTEOPOROSIS
     Dosage: 20 UG, UNKNOWN
     Route: 058

REACTIONS (3)
  - Death [Fatal]
  - Fluid retention [Not Recovered/Not Resolved]
  - Generalised oedema [Not Recovered/Not Resolved]
